FAERS Safety Report 12775032 (Version 1)
Quarter: 2016Q3

REPORT INFORMATION
  Report Type: Spontaneous
  Country: US (occurrence: US)
  Receive Date: 20160923
  Receipt Date: 20160923
  Transmission Date: 20161109
  Serious: Yes (Other)
  Sender: FDA-Public Use
  Company Number: US-HTU-2016US012124

PATIENT
  Age: 70 Year
  Sex: Female
  Weight: 94.3 kg

DRUGS (4)
  1. OXALIPLATIN. [Suspect]
     Active Substance: OXALIPLATIN
     Indication: COLON CANCER
     Dosage: 260 MG, SINGLE (OVER TWO HOURS)
     Route: 042
  2. ALOXI [Suspect]
     Active Substance: PALONOSETRON HYDROCHLORIDE
     Indication: PROPHYLAXIS OF NAUSEA AND VOMITING
     Route: 042
  3. XELODA [Concomitant]
     Active Substance: CAPECITABINE
     Indication: COLON CANCER
     Dosage: 1500 MG, BID
     Route: 048
     Dates: start: 201608
  4. DECADRON [Suspect]
     Active Substance: DEXAMETHASONE
     Dosage: 12 MG, SINGLE
     Route: 042

REACTIONS (3)
  - Joint stiffness [Recovered/Resolved]
  - Transient ischaemic attack [Recovered/Resolved]
  - Stridor [Recovered/Resolved]

NARRATIVE: CASE EVENT DATE: 20160831
